FAERS Safety Report 9611187 (Version 2)
Quarter: 2013Q4

REPORT INFORMATION
  Report Type: Report from Study
  Country: CA (occurrence: CA)
  Receive Date: 20131009
  Receipt Date: 20131009
  Transmission Date: 20140711
  Serious: Yes (Hospitalization, Other)
  Sender: FDA-Public Use
  Company Number: CA-ABBVIE-13P-028-1150317-00

PATIENT
  Sex: Female

DRUGS (1)
  1. HUMIRA [Suspect]
     Indication: PSORIATIC ARTHROPATHY
     Route: 058
     Dates: start: 20110821

REACTIONS (5)
  - Breast injury [Unknown]
  - Breast cyst [Recovering/Resolving]
  - Infected cyst [Recovering/Resolving]
  - Pyrexia [Not Recovered/Not Resolved]
  - Breast abscess [Unknown]
